FAERS Safety Report 16798299 (Version 1)
Quarter: 2019Q3

REPORT INFORMATION
  Report Type: Report from Study
  Country: None (occurrence: CO)
  Receive Date: 20190912
  Receipt Date: 20190912
  Transmission Date: 20191005
  Serious: Yes (Disabling, Other)
  Sender: FDA-Public Use
  Company Number: CO-ABBVIE-19K-036-2921794-00

PATIENT
  Age: 55 Year
  Sex: Female

DRUGS (1)
  1. HUMIRA [Suspect]
     Active Substance: ADALIMUMAB
     Indication: COLITIS ULCERATIVE
     Route: 058
     Dates: start: 20181231, end: 20190221

REACTIONS (8)
  - Hepatitis [Recovering/Resolving]
  - Food poisoning [Recovering/Resolving]
  - Hypoaesthesia [Recovered/Resolved]
  - Inflammation [Recovering/Resolving]
  - Inflammation [Recovering/Resolving]
  - Urticaria [Recovering/Resolving]
  - Hypoaesthesia oral [Recovered/Resolved]
  - Kidney infection [Recovering/Resolving]

NARRATIVE: CASE EVENT DATE: 201908
